FAERS Safety Report 5772477-0 (Version None)
Quarter: 2008Q2

REPORT INFORMATION
  Report Type: 
  Country: None (occurrence: None)
  Receive Date: 20080613
  Receipt Date: 20080604
  Transmission Date: 20081010
  Serious: Yes (Hospitalization)
  Sender: FDA-Public Use
  Company Number: US-ELI_LILLY_AND_COMPANY-US200806001424

PATIENT
  Sex: Female

DRUGS (3)
  1. HUMALOG [Suspect]
     Dosage: 7 U, UNK
     Dates: end: 20080401
  2. HUMALOG [Suspect]
     Dosage: 7 U, UNK
     Dates: start: 20080301, end: 20080401
  3. LANTUS [Concomitant]

REACTIONS (9)
  - BLOOD GLUCOSE DECREASED [None]
  - BLOOD GLUCOSE INCREASED [None]
  - DRUG HYPERSENSITIVITY [None]
  - FALL [None]
  - HYPOAESTHESIA [None]
  - INJECTION SITE PAIN [None]
  - LIMB INJURY [None]
  - OBSTRUCTION [None]
  - WOUND [None]
